FAERS Safety Report 15579311 (Version 3)
Quarter: 2019Q1

REPORT INFORMATION
  Report Type: Spontaneous
  Country: US (occurrence: US)
  Receive Date: 20181102
  Receipt Date: 20190111
  Transmission Date: 20190417
  Serious: Yes (Other)
  Sender: FDA-Public Use
  Company Number: US-SA-2018SA301628

PATIENT
  Age: 55 Year
  Sex: Female
  Weight: 106.14 kg

DRUGS (8)
  1. PROBIOTICS NOS [Concomitant]
     Active Substance: PROBIOTICS NOS
  2. ALOE VERA [Concomitant]
     Active Substance: ALOE VERA LEAF
  3. CALCIUM [Concomitant]
     Active Substance: CALCIUM
  4. TAXOTERE [Suspect]
     Active Substance: DOCETAXEL
     Indication: BREAST CANCER FEMALE
     Dosage: 168 MG, Q3W
     Route: 042
     Dates: start: 20150423, end: 20150423
  5. TAXOTERE [Suspect]
     Active Substance: DOCETAXEL
     Dosage: 168 UNK
     Route: 042
     Dates: start: 20150707, end: 20150707
  6. IBUPROFEN. [Concomitant]
     Active Substance: IBUPROFEN
  7. FLUTICASONE. [Concomitant]
     Active Substance: FLUTICASONE
  8. NEOSAR [Concomitant]
     Active Substance: CYCLOPHOSPHAMIDE

REACTIONS (2)
  - Alopecia [Not Recovered/Not Resolved]
  - Psychological trauma [Unknown]

NARRATIVE: CASE EVENT DATE: 201504
